FAERS Safety Report 10049156 (Version 1)
Quarter: 2014Q2

REPORT INFORMATION
  Report Type: Spontaneous
  Country: TW (occurrence: TW)
  Receive Date: 20140401
  Receipt Date: 20140401
  Transmission Date: 20141212
  Serious: Yes (Other)
  Sender: FDA-Public Use
  Company Number: TW-ROCHE-1371438

PATIENT
  Age: 55 Year
  Sex: Female

DRUGS (3)
  1. HERCEPTIN [Suspect]
     Indication: BREAST CANCER
     Route: 065
     Dates: start: 201010, end: 201102
  2. AROMASIN [Concomitant]
     Indication: BREAST CANCER
     Route: 065
     Dates: start: 201008, end: 201102
  3. TAXOTERE [Concomitant]
     Indication: BREAST CANCER
     Route: 065
     Dates: start: 201010

REACTIONS (1)
  - Lymphadenopathy [Unknown]
